FAERS Safety Report 4957593-5 (Version None)
Quarter: 2006Q1

REPORT INFORMATION
  Report Type: 
  Country: None (occurrence: None)
  Receive Date: 20060330
  Receipt Date: 20060314
  Transmission Date: 20060701
  Serious: Yes (Other)
  Sender: FDA-Public Use
  Company Number: PHEH2006US03556

PATIENT
  Sex: Female

DRUGS (6)
  1. ZELNORM [Suspect]
     Indication: IRRITABLE BOWEL SYNDROME
     Dosage: UNK
     Dates: start: 20051101, end: 20060117
  2. AMOXICILLIN [Concomitant]
  3. NEXIUM [Concomitant]
  4. YASMIN [Concomitant]
  5. PROGESTERONE [Concomitant]
  6. FIBERCON [Concomitant]

REACTIONS (8)
  - GALLBLADDER DISORDER [None]
  - GASTROINTESTINAL ULCER HAEMORRHAGE [None]
  - HAEMATOCHEZIA [None]
  - INTESTINAL HAEMORRHAGE [None]
  - RECTAL HAEMORRHAGE [None]
  - RECTAL ULCER [None]
  - SIGMOIDOSCOPY ABNORMAL [None]
  - ULTRASOUND ABDOMEN [None]
